FAERS Safety Report 8740460 (Version 2)
Quarter: 2014Q3

REPORT INFORMATION
  Report Type: Spontaneous
  Country: US (occurrence: US)
  Receive Date: 20120823
  Receipt Date: 20140815
  Transmission Date: 20150326
  Serious: Yes (Hospitalization, Disabling, Other)
  Sender: FDA-Public Use
  Company Number: US-009507513-2010SP015492

PATIENT
  Sex: Female
  Weight: 99.79 kg

DRUGS (3)
  1. NUVARING [Suspect]
     Active Substance: ETHINYL ESTRADIOL\ETONOGESTREL
     Indication: MENSTRUATION IRREGULAR
     Dosage: UNK
     Route: 067
     Dates: start: 20090908, end: 200911
  2. NUVARING [Suspect]
     Active Substance: ETHINYL ESTRADIOL\ETONOGESTREL
     Indication: OLIGOMENORRHOEA
  3. NUVARING [Suspect]
     Active Substance: ETHINYL ESTRADIOL\ETONOGESTREL
     Indication: CONTRACEPTION
     Dosage: UNK
     Dates: start: 201001, end: 201003

REACTIONS (28)
  - Post thrombotic syndrome [Unknown]
  - Deep vein thrombosis [Unknown]
  - Phlebitis [Unknown]
  - Muscle rupture [Unknown]
  - Pulmonary embolism [Unknown]
  - Migraine [Unknown]
  - Sclerotherapy [Unknown]
  - Lymphadenopathy [Unknown]
  - Blood calcium increased [Unknown]
  - Stress [Unknown]
  - Diabetes mellitus [Unknown]
  - Post-traumatic stress disorder [Unknown]
  - Cervical dysplasia [Unknown]
  - Papilloma viral infection [Unknown]
  - Pulmonary embolism [Unknown]
  - Varicose vein [Unknown]
  - Thrombophlebitis superficial [Unknown]
  - Hypertension [Recovering/Resolving]
  - Sleep apnoea syndrome [Unknown]
  - Infection [Unknown]
  - Surgery [Unknown]
  - Uterine dilation and curettage [Unknown]
  - Blood iron increased [Unknown]
  - Bunion operation [Unknown]
  - Mass excision [Unknown]
  - Gallbladder disorder [Unknown]
  - Pulmonary hypertension [Unknown]
  - Weight increased [Unknown]

NARRATIVE: CASE EVENT DATE: 2009
